FAERS Safety Report 4379902-0 (Version None)
Quarter: 2004Q2

REPORT INFORMATION
  Report Type: 
  Country: None (occurrence: None)
  Receive Date: 20040614
  Receipt Date: 20040528
  Transmission Date: 20050107
  Serious: Yes (Disabling)
  Sender: FDA-Public Use
  Company Number: S04-SWI-02508-01

PATIENT
  Age: 59 Year
  Sex: Female

DRUGS (3)
  1. CITALOPRAM [Suspect]
     Indication: DEPRESSION
     Dosage: 20 MG QD PO
     Route: 048
     Dates: start: 20040303
  2. IMUREK (AZATHIOPRINE) [Concomitant]
  3. VITAMIN B-12 [Concomitant]

REACTIONS (2)
  - ACCOMMODATION DISORDER [None]
  - ACQUIRED NIGHT BLINDNESS [None]
